FAERS Safety Report 5601301-1 (Version None)
Quarter: 2008Q1

REPORT INFORMATION
  Report Type: 
  Country: None (occurrence: None)
  Receive Date: 20080124
  Receipt Date: 20080123
  Transmission Date: 20080703
  Serious: Yes (Other)
  Sender: FDA-Public Use
  Company Number: B0503314A

PATIENT
  Age: 13 Year
  Sex: Male

DRUGS (6)
  1. RELENZA [Suspect]
     Indication: INFLUENZA
     Dosage: 10MG TWICE PER DAY
     Route: 055
     Dates: start: 20080109, end: 20080109
  2. HUSCODE [Concomitant]
     Indication: COUGH
     Dosage: 9ML PER DAY
     Route: 048
  3. CALONAL [Concomitant]
     Dosage: 200MG PER DAY
     Route: 065
  4. LACTEC-G [Concomitant]
  5. NEOLAMIN [Concomitant]
     Route: 065
  6. ASCORBIC ACID [Concomitant]
     Route: 065

REACTIONS (3)
  - ABNORMAL BEHAVIOUR [None]
  - ALTERED STATE OF CONSCIOUSNESS [None]
  - AMNESIA [None]
